FAERS Safety Report 9006195 (Version 1)
Quarter: 2013Q1

REPORT INFORMATION
  Report Type: Spontaneous
  Country: US (occurrence: US)
  Receive Date: 20130110
  Receipt Date: 20130110
  Transmission Date: 20140127
  Serious: Yes (Hospitalization)
  Sender: FDA-Public Use
  Company Number: US-009507513-1301USA001635

PATIENT
  Age: 74 Year
  Sex: Female

DRUGS (19)
  1. SINGULAIR [Suspect]
  2. LIDOCAINE [Concomitant]
     Indication: COLORECTAL CANCER
  3. CAPECITABINE [Suspect]
     Indication: PRODUCT USED FOR UNKNOWN INDICATION
     Route: 048
  4. CPT-11 [Suspect]
     Route: 042
  5. CPT-11 [Suspect]
     Route: 042
  6. PRILOSEC [Suspect]
  7. CLARITIN [Suspect]
  8. FERROUS SULFATE [Suspect]
  9. CAPECITABINE [Suspect]
     Route: 048
  10. LIBRAX [Suspect]
  11. DIFLUCAN [Concomitant]
  12. BECONASE AQ [Concomitant]
  13. ADVAIR [Concomitant]
     Dosage: DISKUS 100/50
  14. PYRIDOXINE [Concomitant]
  15. FIORICET [Concomitant]
  16. SANDOSTATIN [Concomitant]
  17. FLAGYL [Concomitant]
  18. CIPRO [Concomitant]
  19. LIBRIUM [Suspect]

REACTIONS (16)
  - Ileitis [Unknown]
  - Blood alkaline phosphatase increased [Unknown]
  - Dehydration [Unknown]
  - Diarrhoea [Unknown]
  - Diverticulum intestinal [Unknown]
  - Haemoglobin decreased [Unknown]
  - Atrial fibrillation [Unknown]
  - Hiatus hernia [Unknown]
  - White blood cell count decreased [Unknown]
  - Nausea [Unknown]
  - Oral candidiasis [Unknown]
  - Pallor [Unknown]
  - Pyrexia [Unknown]
  - Vomiting [Unknown]
  - Weight decreased [Unknown]
  - Herpes simplex [Unknown]
